FAERS Safety Report 18619668 (Version 2)
Quarter: 2020Q4

REPORT INFORMATION
  Report Type: Spontaneous
  Country: US (occurrence: US)
  Receive Date: 20201215
  Receipt Date: 20201217
  Transmission Date: 20210114
  Serious: Yes (Hospitalization, Other)
  Sender: FDA-Public Use
  Company Number: US-PFIZER INC-2020488530

PATIENT
  Sex: Male

DRUGS (6)
  1. CIPRO [Suspect]
     Active Substance: CIPROFLOXACIN HYDROCHLORIDE
     Indication: GASTROINTESTINAL INFECTION
  2. SOLGAR FORMULA VM-75 [Suspect]
     Active Substance: MINERALS\VITAMINS
     Dosage: 3 DF, 1X/DAY (THREE TABLETS ONCE PER DAY IN THE AFTERNOON WITH WATER AND LUNCH)
     Route: 048
     Dates: start: 20201017, end: 20201020
  3. SOLGAR FORMULA VM-75 [Suspect]
     Active Substance: MINERALS\VITAMINS
     Indication: SUPPLEMENTATION THERAPY
     Dosage: 1 DF, 1X/DAY (TAKING ONE TABLET ONCE PER DAY)
     Route: 048
     Dates: start: 20201017, end: 20201020
  4. FLAGYL [Suspect]
     Active Substance: METRONIDAZOLE\METRONIDAZOLE HYDROCHLORIDE
     Indication: INFLAMMATION
     Dosage: UNK
     Route: 048
  5. FLAGYL [Suspect]
     Active Substance: METRONIDAZOLE\METRONIDAZOLE HYDROCHLORIDE
     Indication: GASTROINTESTINAL INFECTION
  6. CIPRO [Suspect]
     Active Substance: CIPROFLOXACIN HYDROCHLORIDE
     Indication: INFLAMMATION
     Dosage: UNK
     Route: 048

REACTIONS (3)
  - Enteritis infectious [Not Recovered/Not Resolved]
  - Abscess intestinal [Not Recovered/Not Resolved]
  - Condition aggravated [Not Recovered/Not Resolved]

NARRATIVE: CASE EVENT DATE: 20201027
